FAERS Safety Report 4323565-7 (Version None)
Quarter: 2004Q1

REPORT INFORMATION
  Report Type: 
  Country: None (occurrence: None)
  Receive Date: 20040323
  Receipt Date: 20040120
  Transmission Date: 20041129
  Serious: No
  Sender: FDA-Public Use
  Company Number: US_0401100060

PATIENT
  Age: 40 Year
  Sex: Male
  Weight: 118 kg

DRUGS (1)
  1. CIALIS [Suspect]
     Indication: SEXUAL DYSFUNCTION
     Dosage: 20 MG
     Dates: start: 20040120

REACTIONS (1)
  - HEADACHE [None]
